FAERS Safety Report 18306136 (Version 1)
Quarter: 2020Q3

REPORT INFORMATION
  Report Type: Spontaneous
  Country: JP (occurrence: JP)
  Receive Date: 20200923
  Receipt Date: 20200923
  Transmission Date: 20201103
  Serious: Yes (Other)
  Sender: FDA-Public Use
  Company Number: JP-BRISTOL-MYERS SQUIBB COMPANY-BMS-2020-065709

PATIENT
  Sex: Male

DRUGS (4)
  1. SPRYCEL [Suspect]
     Active Substance: DASATINIB
     Dosage: UNAVAILABLE
  2. DRUGS FOR PEPTIC ULCER AND GASTRO?OESOPHAGEAL REFLUX DISEASE (GORD) [Concomitant]
     Active Substance: UNSPECIFIED INGREDIENT
     Indication: PROPHYLAXIS AGAINST GASTROINTESTINAL ULCER
     Route: 065
  3. SPRYCEL [Suspect]
     Active Substance: DASATINIB
     Indication: CHRONIC MYELOID LEUKAEMIA
     Dosage: UNK, QD
     Route: 048
  4. ACETYLSALICYLIC ACID [Concomitant]
     Active Substance: ASPIRIN
     Indication: PRODUCT USED FOR UNKNOWN INDICATION
     Route: 065

REACTIONS (3)
  - Staphylococcal infection [Recovered/Resolved]
  - Shoulder operation [Recovered/Resolved]
  - Arthropathy [Unknown]
